FAERS Safety Report 9333980 (Version 2)
Quarter: 2013Q2

REPORT INFORMATION
  Report Type: Spontaneous
  Country: ES (occurrence: None)
  Receive Date: 20130604
  Receipt Date: 20130619
  Transmission Date: 20140414
  Serious: Yes (Life-Threatening, Hospitalization)
  Sender: FDA-Public Use
  Company Number: AUR-APL-2013-04527

PATIENT
  Age: 75 Year
  Sex: Male

DRUGS (5)
  1. RAMIPRIL (RAMIPRIL) [Suspect]
     Indication: HYPERTENSION
     Route: 048
     Dates: start: 200601, end: 20120202
  2. ALDACTONE (SPIRONOLACTONE) [Suspect]
     Indication: RENAL FAILURE CHRONIC
     Route: 048
     Dates: start: 200606, end: 20120202
  3. SEGURIL [Suspect]
     Indication: RENAL FAILURE CHRONIC
     Route: 048
     Dates: start: 200604, end: 20120202
  4. DIANBEN (METFORMIN HYDROCHLORIDE) [Concomitant]
  5. ZALDIAR (ULTRACET) [Concomitant]

REACTIONS (3)
  - Uraemic encephalopathy [None]
  - Renal failure acute [None]
  - Haemodialysis [None]
